FAERS Safety Report 7194446-9 (Version None)
Quarter: 2010Q4

REPORT INFORMATION
  Report Type: 
  Country: None (occurrence: None)
  Receive Date: 20101223
  Receipt Date: 20101216
  Transmission Date: 20110411
  Serious: Yes (Hospitalization)
  Sender: FDA-Public Use
  Company Number: US-ELI_LILLY_AND_COMPANY-US201012004248

PATIENT
  Sex: Male
  Weight: 62.585 kg

DRUGS (12)
  1. PEMETREXED [Suspect]
     Indication: NON-SMALL CELL LUNG CANCER
     Dosage: 500 MG/M2, OTHER
     Route: 042
     Dates: start: 20101014
  2. PEMETREXED [Suspect]
     Dosage: 700 MG, OTHER
     Route: 042
  3. CARBOPLATIN [Suspect]
     Indication: NON-SMALL CELL LUNG CANCER
     Dosage: 6 D/F, UNK
     Route: 042
     Dates: start: 20101014
  4. CARBOPLATIN [Suspect]
     Dosage: 335 MG, OTHER
     Route: 042
  5. FOLIC ACID [Concomitant]
     Indication: PROPHYLACTIC CHEMOTHERAPY
     Dates: start: 20070101
  6. VITAMIN B-12 [Concomitant]
     Indication: PROPHYLACTIC CHEMOTHERAPY
     Dates: start: 20070101
  7. METFORMIN [Concomitant]
     Indication: DIABETES MELLITUS
     Dates: start: 20100101
  8. MULTI-VITAMINS [Concomitant]
     Indication: HYPOVITAMINOSIS
     Dates: start: 20070101
  9. OMEPRAZOLE [Concomitant]
     Indication: PEPTIC ULCER
     Dates: start: 20070101
  10. ZOCOR [Concomitant]
     Indication: HYPERCHOLESTEROLAEMIA
     Dates: start: 20070101
  11. VITAMIN B COMPLEX /06442901/ [Concomitant]
     Indication: HYPOVITAMINOSIS
     Dates: start: 20070101
  12. ETHYL ALCOHOL [Concomitant]
     Dates: end: 20101214

REACTIONS (1)
  - EPISTAXIS [None]
